FAERS Safety Report 7150417-X (Version None)
Quarter: 2010Q4

REPORT INFORMATION
  Report Type: 
  Country: None (occurrence: None)
  Receive Date: 20101210
  Receipt Date: 20101129
  Transmission Date: 20110411
  Serious: Yes (Other)
  Sender: FDA-Public Use
  Company Number: PHHY2010GR81059

PATIENT
  Sex: Female

DRUGS (2)
  1. ACLASTA [Suspect]
  2. ACLASTA [Suspect]

REACTIONS (3)
  - DISABILITY [None]
  - FATIGUE [None]
  - GINGIVAL DISORDER [None]
